FAERS Safety Report 22113556 (Version 1)
Quarter: 2023Q1

REPORT INFORMATION
  Report Type: Spontaneous
  Country: US (occurrence: US)
  Receive Date: 20230320
  Receipt Date: 20230320
  Transmission Date: 20230418
  Serious: No
  Sender: FDA-Public Use
  Company Number: US-BRISTOL-MYERS SQUIBB COMPANY-2023-039828

PATIENT
  Age: 74 Year
  Sex: Male
  Weight: 89.4 kg

DRUGS (1)
  1. REVLIMID [Suspect]
     Active Substance: LENALIDOMIDE
     Indication: Plasma cell myeloma
     Dosage: FREQ: QD 14 D ON 14 D OFF
     Route: 048

REACTIONS (2)
  - Tooth abscess [Unknown]
  - Off label use [Unknown]
